FAERS Safety Report 9325747 (Version 6)
Quarter: 2013Q3

REPORT INFORMATION
  Report Type: Report from Study
  Country: CA (occurrence: CA)
  Receive Date: 20130604
  Receipt Date: 20130909
  Transmission Date: 20140515
  Serious: Yes (Other)
  Sender: FDA-Public Use
  Company Number: CA-ROCHE-1224945

PATIENT
  Age: 44 Year
  Sex: Male
  Weight: 100 kg

DRUGS (8)
  1. AVASTIN [Suspect]
     Indication: GLIOBLASTOMA
     Route: 042
     Dates: start: 20130404
  2. DECADRON [Concomitant]
  3. ASPIRIN [Concomitant]
  4. ATORVASTATIN [Concomitant]
  5. ESOMEPRAZOLE [Concomitant]
  6. COLACE [Concomitant]
  7. FUROSEMIDE [Concomitant]
  8. INSULIN [Concomitant]

REACTIONS (13)
  - Infected cyst [Unknown]
  - Dizziness [Not Recovered/Not Resolved]
  - Balance disorder [Unknown]
  - Tongue ulceration [Unknown]
  - Diabetes mellitus inadequate control [Not Recovered/Not Resolved]
  - Abscess [Recovering/Resolving]
  - Wheezing [Unknown]
  - Aphthous stomatitis [Recovering/Resolving]
  - Weight increased [Unknown]
  - Oedema peripheral [Not Recovered/Not Resolved]
  - Oedema peripheral [Not Recovered/Not Resolved]
  - Neoplasm progression [Not Recovered/Not Resolved]
  - Drug effect decreased [Not Recovered/Not Resolved]
